FAERS Safety Report 16405206 (Version 1)
Quarter: 2019Q2

REPORT INFORMATION
  Report Type: Spontaneous
  Country: US (occurrence: US)
  Receive Date: 20190607
  Receipt Date: 20190607
  Transmission Date: 20190711
  Serious: No
  Sender: FDA-Public Use
  Company Number: US-GILEAD-2019-0412391

PATIENT
  Age: 50 Year
  Sex: Female

DRUGS (1)
  1. HARVONI [Suspect]
     Active Substance: LEDIPASVIR\SOFOSBUVIR
     Indication: CHRONIC HEPATITIS C
     Dosage: UNK
     Route: 065

REACTIONS (7)
  - Insomnia [Unknown]
  - Depression [Unknown]
  - Vomiting [Unknown]
  - Chest pain [Unknown]
  - Dysphagia [Unknown]
  - Nausea [Unknown]
  - Pruritus [Unknown]
